FAERS Safety Report 7790886-5 (Version None)
Quarter: 2011Q3

REPORT INFORMATION
  Report Type: 
  Country: None (occurrence: None)
  Receive Date: 20110930
  Receipt Date: 20110921
  Transmission Date: 20111222
  Serious: Yes (Hospitalization)
  Sender: FDA-Public Use
  Company Number: FR-ASTRAZENECA-2011SE57439

PATIENT
  Age: 26238 Day
  Sex: Female

DRUGS (8)
  1. ATACAND [Suspect]
     Route: 048
  2. GAVISCON [Concomitant]
  3. ISKEDYL [Suspect]
     Route: 048
  4. SYMBICORT [Concomitant]
     Route: 055
  5. DESLORATADINE [Concomitant]
  6. VOLTAREN [Concomitant]
  7. CANDESARTAN CILEXETIL AND HYDROCHLOROTHIAZIDE [Suspect]
     Route: 048
  8. UVEDOSE [Concomitant]

REACTIONS (1)
  - ORTHOSTATIC HYPOTENSION [None]
